FAERS Safety Report 7584834-0 (Version None)
Quarter: 2011Q2

REPORT INFORMATION
  Report Type: 
  Country: None (occurrence: None)
  Receive Date: 20110630
  Receipt Date: 20110627
  Transmission Date: 20111010
  Serious: Yes (Death, Hospitalization, Other)
  Sender: FDA-Public Use
  Company Number: PHEH2009US03382

PATIENT
  Sex: Male

DRUGS (11)
  1. LASIX [Concomitant]
  2. AREDIA [Suspect]
  3. MAGNESIUM OXIDE [Concomitant]
  4. ATENOLOL [Concomitant]
  5. LISINOPRIL [Concomitant]
  6. HYDROCHLOROTHIAZIDE [Concomitant]
  7. TYLENOL-500 [Concomitant]
  8. ZOMETA [Suspect]
     Dosage: 4 MG, QMO
     Route: 042
  9. ENALAPRIL MALEATE [Concomitant]
  10. MORPHINE SULFATE [Concomitant]
  11. VASOTEC [Concomitant]

REACTIONS (48)
  - POLLAKIURIA [None]
  - OSTEOARTHRITIS [None]
  - DYSPEPSIA [None]
  - ADRENAL NEOPLASM [None]
  - OSTEOPOROSIS [None]
  - ACETABULUM FRACTURE [None]
  - METASTASES TO LUNG [None]
  - INFLUENZA LIKE ILLNESS [None]
  - OSTEITIS DEFORMANS [None]
  - HILAR LYMPHADENOPATHY [None]
  - INSOMNIA [None]
  - ELECTROCARDIOGRAM ST SEGMENT DEPRESSION [None]
  - METASTASES TO BONE [None]
  - DEATH [None]
  - INTERVERTEBRAL DISC PROTRUSION [None]
  - WEIGHT DECREASED [None]
  - OSTEOLYSIS [None]
  - ATELECTASIS [None]
  - ABDOMINAL PAIN UPPER [None]
  - PAIN [None]
  - ANXIETY [None]
  - BLOOD URINE PRESENT [None]
  - PUBIS FRACTURE [None]
  - HYPERCALCAEMIA [None]
  - PRURITUS [None]
  - DYSPNOEA [None]
  - MYALGIA [None]
  - DEEP VEIN THROMBOSIS [None]
  - AZOTAEMIA [None]
  - DISABILITY [None]
  - RENAL FAILURE ACUTE [None]
  - ANAEMIA [None]
  - METASTATIC RENAL CELL CARCINOMA [None]
  - CEREBRAL ARTERY THROMBOSIS [None]
  - BONE PAIN [None]
  - CACHEXIA [None]
  - PULMONARY EMBOLISM [None]
  - BRADYCARDIA [None]
  - OSTEONECROSIS OF JAW [None]
  - ADENOCARCINOMA [None]
  - MUSCULOSKELETAL DISCOMFORT [None]
  - DEPRESSION [None]
  - HEPATIC LESION [None]
  - INJURY [None]
  - ANHEDONIA [None]
  - ARTHRALGIA [None]
  - LUNG NEOPLASM [None]
  - PANCREATITIS [None]
